FAERS Safety Report 5128309-7 (Version None)
Quarter: 2006Q4

REPORT INFORMATION
  Report Type: 
  Country: None (occurrence: None)
  Receive Date: 20061011
  Receipt Date: 20060928
  Transmission Date: 20070319
  Serious: Yes (Other)
  Sender: FDA-Public Use
  Company Number: 2006105717

PATIENT
  Age: 55 Year
  Sex: Female
  Weight: 59.8748 kg

DRUGS (8)
  1. LYRICA [Suspect]
     Indication: FIBROMYALGIA
     Dosage: 225 MG (75 MG, 3 IN 1 D), ORAL
     Route: 048
     Dates: start: 20051101
  2. GABAPENTIN [Suspect]
     Dosage: 300 MG, ORAL
     Route: 048
  3. PAXIL [Concomitant]
  4. MULTIVITAMIN [Concomitant]
  5. CALCIUM W/MAGNESIUM (CALCIUM, MAGNESIUM) [Concomitant]
  6. VITAMIN D [Concomitant]
  7. MELATONIN (MELATONIN) [Concomitant]
  8. ZOPIOCLONE (ZOPICLONE) [Concomitant]

REACTIONS (8)
  - DIZZINESS [None]
  - DYSKINESIA [None]
  - HEADACHE [None]
  - MUSCLE SPASMS [None]
  - MUSCLE TWITCHING [None]
  - OEDEMA PERIPHERAL [None]
  - PAIN [None]
  - THROAT IRRITATION [None]
